APPROVED DRUG PRODUCT: DOPAMINE HYDROCHLORIDE AND DEXTROSE 5% IN PLASTIC CONTAINER
Active Ingredient: DOPAMINE HYDROCHLORIDE
Strength: 160MG/100ML
Dosage Form/Route: INJECTABLE;INJECTION
Application: N019099 | Product #003
Applicant: B BRAUN MEDICAL INC
Approved: Oct 15, 1986 | RLD: Yes | RS: No | Type: DISCN